FAERS Safety Report 6769064-4 (Version None)
Quarter: 2010Q2

REPORT INFORMATION
  Report Type: 
  Country: None (occurrence: None)
  Receive Date: 20100615
  Receipt Date: 20100601
  Transmission Date: 20101027
  Serious: No
  Sender: FDA-Public Use
  Company Number: US-BIOGENIDEC-2010BI019441

PATIENT
  Sex: Female

DRUGS (2)
  1. AVONEX [Suspect]
     Indication: MULTIPLE SCLEROSIS
     Route: 030
     Dates: start: 20000410, end: 20091207
  2. AVONEX [Suspect]
     Route: 030
     Dates: start: 20100111

REACTIONS (2)
  - FATIGUE [None]
  - TEMPERATURE INTOLERANCE [None]
